APPROVED DRUG PRODUCT: IMATINIB MESYLATE
Active Ingredient: IMATINIB MESYLATE
Strength: EQ 100MG BASE
Dosage Form/Route: TABLET;ORAL
Application: A205990 | Product #001
Applicant: NOVITIUM PHARMA LLC
Approved: Feb 8, 2019 | RLD: No | RS: No | Type: DISCN